FAERS Safety Report 5319007-5 (Version None)
Quarter: 2007Q1

REPORT INFORMATION
  Report Type: 
  Country: None (occurrence: None)
  Receive Date: 20070202
  Receipt Date: 20061102
  Transmission Date: 20070707
  Serious: Yes (Hospitalization)
  Sender: FDA-Public Use
  Company Number: 252265

PATIENT
  Age: 69 Year
  Sex: Female
  Weight: 90.2 kg

DRUGS (5)
  1. NOVOLOG [Suspect]
     Indication: INSULIN-REQUIRING TYPE II DIABETES MELLITUS
     Dosage: 5 IU, TID, SUBCUTANEOUS
     Route: 058
     Dates: start: 20060301
  2. LASIX [Suspect]
     Indication: ILL-DEFINED DISORDER
  3. LANTUS [Concomitant]
  4. SYNTHROID [Concomitant]
  5. ASPIRIN [Concomitant]

REACTIONS (1)
  - URTICARIA [None]
